FAERS Safety Report 18423416 (Version 1)
Quarter: 2020Q4

REPORT INFORMATION
  Report Type: Report from Study
  Country: CA (occurrence: CA)
  Receive Date: 20201023
  Receipt Date: 20201023
  Transmission Date: 20210114
  Serious: Yes (Other)
  Sender: FDA-Public Use
  Company Number: NVSC2020CA281541

PATIENT
  Sex: Female

DRUGS (1)
  1. GILENYA [Suspect]
     Active Substance: FINGOLIMOD HYDROCHLORIDE
     Indication: RELAPSING-REMITTING MULTIPLE SCLEROSIS
     Dosage: UNK
     Route: 048
     Dates: start: 201710

REACTIONS (6)
  - Hypoaesthesia [Unknown]
  - Neuropathy peripheral [Unknown]
  - Multiple sclerosis relapse [Unknown]
  - Impaired driving ability [Unknown]
  - Pain in extremity [Unknown]
  - Anxiety [Unknown]
